FAERS Safety Report 6791014-5 (Version None)
Quarter: 2010Q2

REPORT INFORMATION
  Report Type: 
  Country: None (occurrence: None)
  Receive Date: 20100624
  Receipt Date: 20100616
  Transmission Date: 20101027
  Serious: Yes (Other)
  Sender: FDA-Public Use
  Company Number: US-AMGEN-QUU412196

PATIENT
  Sex: Male
  Weight: 104.4 kg

DRUGS (3)
  1. ENBREL [Suspect]
     Indication: PSORIASIS
     Dates: start: 20090101
  2. IRON [Concomitant]
  3. HUMIRA [Concomitant]
     Dates: start: 20091201, end: 20100101

REACTIONS (1)
  - AUTOIMMUNE DISORDER [None]
